FAERS Safety Report 7045569-6 (Version None)
Quarter: 2010Q4

REPORT INFORMATION
  Report Type: 
  Country: None (occurrence: None)
  Receive Date: 20101014
  Receipt Date: 20101011
  Transmission Date: 20110411
  Serious: Yes (Death, Other)
  Sender: FDA-Public Use
  Company Number: GB-ROCHE-731268

PATIENT
  Age: 43 Year
  Sex: Female

DRUGS (2)
  1. MYCOPHENOLATE MOFETIL [Suspect]
     Route: 065
  2. TACROLIMUS [Suspect]
     Indication: ORGAN TRANSPLANT
     Route: 065

REACTIONS (8)
  - ACUTE GRAFT VERSUS HOST DISEASE IN LIVER [None]
  - ANAEMIA [None]
  - BLOOD BILIRUBIN INCREASED [None]
  - BLOOD LACTATE DEHYDROGENASE INCREASED [None]
  - FUNGAL SEPSIS [None]
  - HAEMOGLOBIN ABNORMAL [None]
  - HAEMOLYSIS [None]
  - LYMPHOCYTOSIS [None]
